FAERS Safety Report 7396733-8 (Version None)
Quarter: 2011Q2

REPORT INFORMATION
  Report Type: 
  Country: None (occurrence: None)
  Receive Date: 20110406
  Receipt Date: 20110328
  Transmission Date: 20111010
  Serious: Yes (Other)
  Sender: FDA-Public Use
  Company Number: FR-SANOFI-AVENTIS-2011SA015999

PATIENT
  Sex: Male

DRUGS (3)
  1. MULTAQ [Suspect]
     Indication: ATRIAL FIBRILLATION
     Route: 048
  2. BISOPROLOL FUMARATE [Concomitant]
     Route: 048
  3. COAPROVEL [Concomitant]
     Route: 048

REACTIONS (2)
  - UNDERDOSE [None]
  - ATRIAL FIBRILLATION [None]
